FAERS Safety Report 17159305 (Version 1)
Quarter: 2019Q4

REPORT INFORMATION
  Report Type: Spontaneous
  Country: US (occurrence: US)
  Receive Date: 20191215
  Receipt Date: 20191215
  Transmission Date: 20200122
  Serious: Yes (Life-Threatening)
  Sender: FDA-Public Use
  Company Number: None

PATIENT
  Age: 42 Year
  Sex: Female
  Weight: 94.5 kg

DRUGS (1)
  1. BELBUCA [Suspect]
     Active Substance: BUPRENORPHINE HYDROCHLORIDE
     Indication: PAIN
     Dosage: ?          OTHER STRENGTH:MCG;QUANTITY:1 FILM;OTHER ROUTE:DISSOLVE BETWEEN CHEEK AND GUM?
     Dates: start: 20191101, end: 20191102

REACTIONS (10)
  - Chest discomfort [None]
  - Insomnia [None]
  - Fatigue [None]
  - Migraine [None]
  - Dyspnoea [None]
  - Blood pressure decreased [None]
  - Pain [None]
  - Drug hypersensitivity [None]
  - Ulcer [None]
  - Oral discomfort [None]

NARRATIVE: CASE EVENT DATE: 20191101
